FAERS Safety Report 8150623-1 (Version None)
Quarter: 2012Q1

REPORT INFORMATION
  Report Type: 
  Country: None (occurrence: None)
  Receive Date: 20120220
  Receipt Date: 20120207
  Transmission Date: 20120608
  Serious: Yes (Other)
  Sender: FDA-Public Use
  Company Number: PHHY2010CA47973

PATIENT
  Sex: Female

DRUGS (3)
  1. SANDOSTATIN LAR [Suspect]
     Dosage: 50 MG, QMO
     Route: 030
     Dates: start: 20100824
  2. SANDOSTATIN LAR [Suspect]
     Dosage: 40 MG, UNK
  3. SANDOSTATIN LAR [Suspect]
     Indication: ALBRIGHT'S DISEASE
     Dosage: 50 MG, EVERY 4 WEEKS
     Route: 030
     Dates: start: 20030112

REACTIONS (6)
  - ABDOMINAL PAIN [None]
  - NAUSEA [None]
  - VOMITING [None]
  - ABDOMINAL DISCOMFORT [None]
  - HEART RATE INCREASED [None]
  - DIARRHOEA [None]
